FAERS Safety Report 5805255-4 (Version None)
Quarter: 2008Q3

REPORT INFORMATION
  Report Type: 
  Country: None (occurrence: None)
  Receive Date: 20080709
  Receipt Date: 20080702
  Transmission Date: 20090109
  Serious: Yes (Hospitalization)
  Sender: FDA-Public Use
  Company Number: GB-ALLERGAN-0808096US

PATIENT
  Sex: Female

DRUGS (5)
  1. BOTOX [Suspect]
     Indication: HYPERTONIC BLADDER
     Dosage: UNK, SINGLE
     Dates: start: 20061207, end: 20061207
  2. BLINDED BOTULINUM TOXIN TYPE A - GENERAL [Suspect]
     Indication: HYPERTONIC BLADDER
     Dosage: UNK, SINGLE
     Dates: start: 20061207, end: 20061207
  3. CIPROFLOXACIN [Concomitant]
     Indication: URINARY TRACT INFECTION
     Dates: start: 20061222, end: 20061224
  4. AUGMENTIN '125' [Concomitant]
     Indication: URINARY TRACT INFECTION
     Dates: start: 20061224, end: 20070131
  5. OXYBUTYNIN CHLORIDE [Concomitant]
     Indication: BLADDER SPASM
     Dates: start: 20070205, end: 20070324

REACTIONS (1)
  - URINARY RETENTION [None]
